FAERS Safety Report 8837206 (Version 1)
Quarter: 2012Q4

REPORT INFORMATION
  Report Type: 
  Country: SE (occurrence: SE)
  Receive Date: 20121012
  Receipt Date: 20121012
  Transmission Date: 20130627
  Serious: Yes (Hospitalization)
  Sender: FDA-Public Use
  Company Number: SE-009507513-1210SWE003358

PATIENT
  Age: 86 Year
  Sex: Female

DRUGS (4)
  1. TRILAFON DECANOATE [Suspect]
     Route: 030
  2. LEVAXIN [Concomitant]
  3. FURIX [Concomitant]
  4. SOBRIL [Concomitant]
     Route: 048

REACTIONS (4)
  - Musculoskeletal stiffness [Recovered/Resolved]
  - Gait disturbance [None]
  - Depressed level of consciousness [None]
  - Hypotension [None]
